FAERS Safety Report 7913864-1 (Version None)
Quarter: 2011Q4

REPORT INFORMATION
  Report Type: 
  Country: None (occurrence: None)
  Receive Date: 20111114
  Receipt Date: 20111114
  Transmission Date: 20120403
  Serious: Yes (Hospitalization)
  Sender: FDA-Public Use
  Company Number: None

PATIENT
  Sex: Male
  Weight: 43.5 kg

DRUGS (3)
  1. CYTARABINE [Suspect]
     Indication: ACUTE PROMYELOCYTIC LEUKAEMIA
     Dosage: 7890 MG
     Dates: end: 20111027
  2. TRETINOIN [Suspect]
     Dosage: 420 MG
     Dates: end: 20111107
  3. MITOXANTRONE HYDROCHLORIDE [Suspect]
     Dosage: 26 MG
     Dates: end: 20111028

REACTIONS (5)
  - RASH PUSTULAR [None]
  - ANIMAL SCRATCH [None]
  - NEUTROPENIA [None]
  - ERYTHEMA [None]
  - PYREXIA [None]
